FAERS Safety Report 6149771-7 (Version None)
Quarter: 2009Q2

REPORT INFORMATION
  Report Type: 
  Country: None (occurrence: None)
  Receive Date: 20090407
  Receipt Date: 20090407
  Transmission Date: 20091009
  Serious: Yes (Life-Threatening)
  Sender: FDA-Public Use
  Company Number: None

PATIENT
  Sex: Male
  Weight: 128.368 kg

DRUGS (1)
  1. GEMFIBROZIL [Suspect]
     Indication: BLOOD TRIGLYCERIDES INCREASED
     Dosage: 600 MG TWICE DAILY PO
     Route: 048
     Dates: start: 20090206, end: 20090406

REACTIONS (7)
  - HYPERTENSION [None]
  - MUSCULAR WEAKNESS [None]
  - OROPHARYNGEAL PAIN [None]
  - PRURITUS [None]
  - URINE OUTPUT INCREASED [None]
  - VISION BLURRED [None]
  - WEIGHT DECREASED [None]
